FAERS Safety Report 12838633 (Version 1)
Quarter: 2016Q4

REPORT INFORMATION
  Report Type: Spontaneous
  Country: CZ (occurrence: CZ)
  Receive Date: 20161012
  Receipt Date: 20161012
  Transmission Date: 20170207
  Serious: Yes (Other)
  Sender: FDA-Public Use
  Company Number: CZ-MYLANLABS-2016M1043803

PATIENT

DRUGS (1)
  1. EPIPEN [Suspect]
     Active Substance: EPINEPHRINE
     Indication: ALLERGY TO ARTHROPOD STING
     Dosage: 0.3 MG, UNK

REACTIONS (1)
  - Device failure [Unknown]
